FAERS Safety Report 25945989 (Version 1)
Quarter: 2025Q4

REPORT INFORMATION
  Report Type: Report from Study
  Country: US (occurrence: US)
  Receive Date: 20251021
  Receipt Date: 20251021
  Transmission Date: 20260118
  Serious: Yes (Hospitalization, Other)
  Sender: ABBVIE
  Company Number: US-ABBVIE-6509672

PATIENT
  Age: 75 Year
  Sex: Male

DRUGS (2)
  1. VYALEV [Suspect]
     Active Substance: FOSCARBIDOPA\FOSLEVODOPA
     Indication: Parkinson^s disease
     Route: 058
     Dates: start: 20250714
  2. RYTARY [Suspect]
     Active Substance: CARBIDOPA\LEVODOPA
     Indication: Parkinson^s disease
     Route: 065

REACTIONS (11)
  - Lumbar vertebral fracture [Recovering/Resolving]
  - Rehabilitation therapy [Unknown]
  - Freezing phenomenon [Unknown]
  - Product dose omission issue [Not Recovered/Not Resolved]
  - Catatonia [Recovered/Resolved]
  - Gait disturbance [Unknown]
  - Incorrect dose administered [Not Recovered/Not Resolved]
  - Fall [Recovered/Resolved]
  - Catatonia [Recovered/Resolved]
  - Tremor [Unknown]
  - Craniofacial fracture [Recovering/Resolving]

NARRATIVE: CASE EVENT DATE: 20250101
